FAERS Safety Report 8800178 (Version 1)
Quarter: 2012Q4

REPORT INFORMATION
  Report Type: Report from Study
  Country: AU (occurrence: AU)
  Receive Date: 20120921
  Receipt Date: 20120921
  Transmission Date: 20130627
  Serious: Yes (Other)
  Sender: FDA-Public Use
  Company Number: AU-ROCHE-1120813

PATIENT
  Sex: Female

DRUGS (3)
  1. AVASTIN [Suspect]
     Indication: OVARIAN CANCER
     Dosage: 4 DOSES
     Route: 065
  2. PACLITAXEL [Suspect]
     Indication: PRODUCT USED FOR UNKNOWN INDICATION
  3. CAELYX [Concomitant]

REACTIONS (3)
  - Toxicity to various agents [Unknown]
  - Lymphoedema [Not Recovered/Not Resolved]
  - Ascites [Not Recovered/Not Resolved]
